FAERS Safety Report 6698270-2 (Version None)
Quarter: 2010Q2

REPORT INFORMATION
  Report Type: 
  Country: None (occurrence: None)
  Receive Date: 20100427
  Receipt Date: 20100419
  Transmission Date: 20101027
  Serious: Yes (Hospitalization)
  Sender: FDA-Public Use
  Company Number: US-ASTRAZENECA-2010SE17162

PATIENT
  Sex: Female

DRUGS (3)
  1. ARIMIDEX [Suspect]
     Indication: BREAST CANCER
     Route: 048
     Dates: start: 20070501
  2. METOPROLOL SUCCINATE [Concomitant]
     Indication: HYPERTENSION
  3. TRIAMTEREN-HCTZ [Concomitant]
     Indication: HYPERTENSION
     Dosage: 37.5/25 MG DAILY

REACTIONS (3)
  - ANORECTAL OPERATION [None]
  - DYSPAREUNIA [None]
  - VULVOVAGINAL DRYNESS [None]
